FAERS Safety Report 10056560 (Version 1)
Quarter: 2014Q2

REPORT INFORMATION
  Report Type: Spontaneous
  Country: US (occurrence: US)
  Receive Date: 20140403
  Receipt Date: 20140403
  Transmission Date: 20141212
  Serious: No
  Sender: FDA-Public Use
  Company Number: US-PFIZER INC-2014090274

PATIENT
  Sex: Male

DRUGS (1)
  1. ADVIL PM [Suspect]
     Dosage: THREE CAPLETS, ONCE AT NIGHT

REACTIONS (3)
  - Overdose [Unknown]
  - Drug ineffective [Unknown]
  - Middle insomnia [Unknown]
